FAERS Safety Report 21753103 (Version 1)
Quarter: 2022Q4

REPORT INFORMATION
  Report Type: Spontaneous
  Country: US (occurrence: US)
  Receive Date: 20221220
  Receipt Date: 20221220
  Transmission Date: 20230113
  Serious: No
  Sender: FDA-Public Use
  Company Number: CID000000000031016

PATIENT
  Age: 68 Year
  Sex: Female
  Weight: 49.9 kg

DRUGS (2)
  1. AJOVY [Suspect]
     Active Substance: FREMANEZUMAB-VFRM
     Indication: Migraine
     Dosage: 225 MG/1.5 ML
     Route: 065
  2. DULOXETINE [Concomitant]
     Active Substance: DULOXETINE
     Indication: Product used for unknown indication
     Dosage: 30 MILLIGRAM DAILY;
     Route: 065

REACTIONS (3)
  - Therapeutic product effect decreased [Unknown]
  - Headache [Not Recovered/Not Resolved]
  - Treatment noncompliance [Unknown]
